FAERS Safety Report 25711678 (Version 1)
Quarter: 2025Q3

REPORT INFORMATION
  Report Type: Spontaneous
  Country: EU (occurrence: EU)
  Receive Date: 20250821
  Receipt Date: 20250821
  Transmission Date: 20251020
  Serious: Yes (Other)
  Sender: ALVOGEN
  Company Number: EU-THERAMEX-2025002180

PATIENT
  Sex: Female

DRUGS (1)
  1. TERIPARATIDE [Suspect]
     Active Substance: TERIPARATIDE
     Indication: Osteoporosis
     Dosage: 1INJ/24H
     Route: 058
     Dates: start: 2024

REACTIONS (5)
  - Systemic lupus erythematosus [Recovered/Resolved]
  - Discomfort [Unknown]
  - Depressed mood [Unknown]
  - Insomnia [Unknown]
  - Therapy interrupted [Unknown]
